FAERS Safety Report 11245018 (Version 2)
Quarter: 2015Q3

REPORT INFORMATION
  Report Type: Report from Study
  Country: JP (occurrence: JP)
  Receive Date: 20150707
  Receipt Date: 20150925
  Transmission Date: 20151125
  Serious: Yes (Other)
  Sender: FDA-Public Use
  Company Number: PHHY2012JP120607

PATIENT
  Age: 33 Year
  Sex: Female

DRUGS (42)
  1. CLOZARIL [Suspect]
     Active Substance: CLOZAPINE
     Dosage: 50 MG, QD
     Route: 048
     Dates: start: 20120903, end: 20120905
  2. RILMAZAFONE [Concomitant]
     Active Substance: RILMAZAFONE
     Indication: SCHIZOPHRENIA, DISORGANISED TYPE
     Dosage: 2 MG, QD
     Route: 048
     Dates: start: 20120925, end: 20121003
  3. ROZEREM [Concomitant]
     Active Substance: RAMELTEON
     Indication: SCHIZOPHRENIA, DISORGANISED TYPE
     Dosage: 8 MG, QD
     Route: 048
     Dates: start: 20120925, end: 20130228
  4. MEILAX [Concomitant]
     Active Substance: ETHYL LOFLAZEPATE
     Indication: SCHIZOPHRENIA, DISORGANISED TYPE
     Dosage: 1 MG, QD
     Route: 048
     Dates: start: 20121015, end: 20121017
  5. CLOZARIL [Suspect]
     Active Substance: CLOZAPINE
     Dosage: 37.5 MG, QD
     Route: 048
     Dates: start: 20120902, end: 20120902
  6. ROZEREM [Concomitant]
     Active Substance: RAMELTEON
     Dosage: 8 MG, QD
     Route: 048
     Dates: start: 20130831
  7. HALCION [Concomitant]
     Active Substance: TRIAZOLAM
     Dosage: 0.25 MG, QD
     Route: 048
     Dates: start: 20140709
  8. LIMAS [Concomitant]
     Active Substance: LITHIUM CARBONATE
     Indication: SCHIZOPHRENIA, DISORGANISED TYPE
     Dosage: 400 MG, QD
     Route: 048
     Dates: start: 20121011, end: 20121107
  9. CLOZARIL [Suspect]
     Active Substance: CLOZAPINE
     Dosage: 125 MG, QD
     Route: 048
     Dates: start: 20120910, end: 20120912
  10. CLOZARIL [Suspect]
     Active Substance: CLOZAPINE
     Dosage: 400 MG, TID (1-1-2)
     Route: 048
  11. ROHYPNOL [Concomitant]
     Active Substance: FLUNITRAZEPAM
     Indication: SCHIZOPHRENIA, DISORGANISED TYPE
     Dosage: 2 MG, QD
     Route: 048
     Dates: end: 20120904
  12. MEILAX [Concomitant]
     Active Substance: ETHYL LOFLAZEPATE
     Dosage: 0.5 MG, QD
     Route: 048
     Dates: start: 20121018, end: 20121022
  13. CLOZARIL [Suspect]
     Active Substance: CLOZAPINE
     Dosage: 25 MG, QD
     Route: 048
     Dates: start: 20120831, end: 20120901
  14. CLOZARIL [Suspect]
     Active Substance: CLOZAPINE
     Dosage: 250 MG, QD
     Route: 048
     Dates: start: 20120928, end: 20121004
  15. CLOZARIL [Suspect]
     Active Substance: CLOZAPINE
     Dosage: 350 MG, QD
     Route: 048
     Dates: start: 20130222, end: 20130314
  16. CLOZARIL [Suspect]
     Active Substance: CLOZAPINE
     Dosage: 400 MG, QD
     Route: 048
     Dates: start: 20130315
  17. TRIAZOLAM. [Suspect]
     Active Substance: TRIAZOLAM
     Indication: SCHIZOPHRENIA, DISORGANISED TYPE
     Dosage: 0.125 MG, QD
     Route: 048
     Dates: start: 20121101, end: 20121108
  18. HALCION [Concomitant]
     Active Substance: TRIAZOLAM
     Dosage: 0.125 MG, QD
     Route: 048
     Dates: start: 20130705, end: 20130831
  19. CLOZARIL [Suspect]
     Active Substance: CLOZAPINE
     Dosage: 100 MG, QD
     Route: 048
     Dates: start: 20120908, end: 20120909
  20. CLOZARIL [Suspect]
     Active Substance: CLOZAPINE
     Dosage: 200 MG, QD
     Route: 048
     Dates: start: 20120919, end: 20120927
  21. CLOZARIL [Suspect]
     Active Substance: CLOZAPINE
     Dosage: 350 MG, QD
     Route: 048
     Dates: start: 20121026, end: 20121101
  22. CLOZARIL [Suspect]
     Active Substance: CLOZAPINE
     Dosage: 400 MG, BID (1-3)
     Route: 048
  23. ALPRAZOLAM. [Concomitant]
     Active Substance: ALPRAZOLAM
     Indication: SCHIZOPHRENIA, DISORGANISED TYPE
     Dosage: 0.8 MG, QD
     Route: 048
     Dates: start: 20121011, end: 20121015
  24. CLOZARIL [Suspect]
     Active Substance: CLOZAPINE
     Dosage: 75 MG, QD
     Route: 048
     Dates: start: 20120906, end: 20120907
  25. CLOZARIL [Suspect]
     Active Substance: CLOZAPINE
     Dosage: 300 MG, QD
     Route: 048
     Dates: start: 20121005, end: 20121025
  26. CLOZARIL [Suspect]
     Active Substance: CLOZAPINE
     Dosage: 400 MG, QD
     Route: 048
     Dates: start: 20121102, end: 20121129
  27. CLOZARIL [Suspect]
     Active Substance: CLOZAPINE
     Dosage: 450 MG, QD
     Route: 048
     Dates: start: 20131128, end: 20131211
  28. CLOZARIL [Suspect]
     Active Substance: CLOZAPINE
     Dosage: 500 MG, QD
     Route: 048
     Dates: start: 20140623
  29. SOLANAX [Concomitant]
     Active Substance: ALPRAZOLAM
     Indication: SCHIZOPHRENIA, DISORGANISED TYPE
     Dosage: 1.2 MG, QD
     Route: 048
     Dates: start: 20120928, end: 20121010
  30. CLOZARIL [Suspect]
     Active Substance: CLOZAPINE
     Dosage: 150 MG, QD
     Route: 048
     Dates: start: 20120913, end: 20120915
  31. CLOZARIL [Suspect]
     Active Substance: CLOZAPINE
     Dosage: 175 MG, QD
     Route: 048
     Dates: start: 20120916, end: 20120918
  32. CLOZARIL [Suspect]
     Active Substance: CLOZAPINE
     Dosage: 350 MG, QD
     Route: 048
     Dates: start: 20121130, end: 20121210
  33. CLOZARIL [Suspect]
     Active Substance: CLOZAPINE
     Dosage: 300 MG, QD
     Route: 048
     Dates: start: 20121211, end: 20130221
  34. CLOZARIL [Suspect]
     Active Substance: CLOZAPINE
     Dosage: 400 MG, BID (MORNING AND EVENING)
     Route: 048
     Dates: start: 20130904
  35. CLOZARIL [Suspect]
     Active Substance: CLOZAPINE
     Dosage: 400 MG, QD
     Route: 048
     Dates: start: 20131212, end: 20140622
  36. U PAN [Concomitant]
     Active Substance: LORAZEPAM
     Indication: SCHIZOPHRENIA, DISORGANISED TYPE
     Dosage: 3 MG, QD
     Route: 048
     Dates: end: 20120927
  37. HALCION [Concomitant]
     Active Substance: TRIAZOLAM
     Indication: SCHIZOPHRENIA, DISORGANISED TYPE
     Dosage: 0.25 MG, QD
     Route: 048
     Dates: start: 20121011, end: 20121031
  38. HALCION [Concomitant]
     Active Substance: TRIAZOLAM
     Dosage: 0.25 MG, QD
     Route: 048
     Dates: start: 20121221, end: 20130704
  39. CLOZARIL [Suspect]
     Active Substance: CLOZAPINE
     Indication: SCHIZOPHRENIA, DISORGANISED TYPE
     Dosage: 12.5 MG, QD
     Route: 048
     Dates: start: 20120830, end: 20120830
  40. CLOZARIL [Suspect]
     Active Substance: CLOZAPINE
     Dosage: 500 MG, QD
     Route: 048
     Dates: start: 20131031, end: 20131127
  41. RILMAZAFONE [Concomitant]
     Active Substance: RILMAZAFONE
     Dosage: 1 MG, QD
     Route: 048
     Dates: start: 20121004, end: 20121010
  42. LITHIUM CARBONATE. [Concomitant]
     Active Substance: LITHIUM CARBONATE
     Indication: SCHIZOPHRENIA, DISORGANISED TYPE
     Dosage: 200 MG, QD
     Route: 048
     Dates: start: 20121108, end: 20121122

REACTIONS (8)
  - Paranoia [Recovering/Resolving]
  - Constipation [Recovering/Resolving]
  - Somnolence [Recovering/Resolving]
  - Hallucination [Recovering/Resolving]
  - Salivary hypersecretion [Recovered/Resolved]
  - Thirst [Unknown]
  - Salivary hypersecretion [Recovering/Resolving]
  - Polydipsia [Recovering/Resolving]

NARRATIVE: CASE EVENT DATE: 20120918
